FAERS Safety Report 8491742-X (Version None)
Quarter: 2012Q3

REPORT INFORMATION
  Report Type: 
  Country: None (occurrence: None)
  Receive Date: 20120706
  Receipt Date: 20120628
  Transmission Date: 20120928
  Serious: Yes (Other)
  Sender: FDA-Public Use
  Company Number: US-UCBSA-060785

PATIENT
  Age: 60 Year
  Sex: Female
  Weight: 56.7 kg

DRUGS (8)
  1. CYTOMEL [Concomitant]
     Indication: THYROID DISORDER
     Route: 048
  2. OMEPRAZOLE [Suspect]
     Indication: DYSPEPSIA
     Route: 048
     Dates: start: 20120430, end: 20120603
  3. OMEPRAZOLE [Suspect]
     Route: 048
     Dates: start: 20120426, end: 20120401
  4. OMEPRAZOLE [Suspect]
     Route: 048
     Dates: start: 20120426, end: 20120401
  5. VICODIN [Concomitant]
     Indication: PAIN
     Dosage: 1/2 PILL
     Route: 048
     Dates: start: 20120625
  6. OMEPRAZOLE [Suspect]
     Indication: GASTROOESOPHAGEAL REFLUX DISEASE
     Route: 048
     Dates: start: 20120430, end: 20120603
  7. IBUPROFEN (ADVIL) [Concomitant]
     Indication: INFLAMMATION
     Route: 048
     Dates: start: 20120620
  8. LEVOTHROID [Concomitant]
     Indication: THYROID DISORDER
     Route: 048

REACTIONS (10)
  - THYROIDITIS [None]
  - PALPITATIONS [None]
  - TREMOR [None]
  - BURNING SENSATION [None]
  - SKIN BURNING SENSATION [None]
  - SUICIDAL IDEATION [None]
  - DYSGEUSIA [None]
  - ABNORMAL FAECES [None]
  - BLOOD GLUCOSE DECREASED [None]
  - THYROID DISORDER [None]
